FAERS Safety Report 7506959-8 (Version None)
Quarter: 2011Q2

REPORT INFORMATION
  Report Type: 
  Country: None (occurrence: None)
  Receive Date: 20110526
  Receipt Date: 20110517
  Transmission Date: 20111010
  Serious: Yes (Hospitalization, Other)
  Sender: FDA-Public Use
  Company Number: US-ASTRAZENECA-2011SE15018

PATIENT
  Age: 52 Year
  Sex: Female
  Weight: 68.9 kg

DRUGS (32)
  1. CLONIDINE [Concomitant]
     Route: 048
  2. VITAMIN D [Concomitant]
     Dosage: EVERY MORNING
     Route: 048
  3. HYDROCODONE-APAP-NUTRIT [Concomitant]
     Indication: PAIN
     Dosage: 1-2 TABLETS EVERY SIX HOURS AS NEEDED
     Route: 048
  4. MIRALAX [Concomitant]
     Route: 048
  5. ZOFRAN [Concomitant]
     Route: 048
  6. ASCORBIC ACID [Concomitant]
     Route: 048
  7. ATIVAN [Concomitant]
     Route: 048
  8. ATIVAN [Concomitant]
     Dosage: 1 DF AT 8 A.M., NOON AND AT 5 P.M.
     Route: 048
  9. ASPIRIN [Concomitant]
     Route: 048
  10. CALCIUM+D [Concomitant]
     Dosage: 600-200 MG, DAILY
     Route: 048
  11. SEROQUEL [Suspect]
     Indication: BIPOLAR DISORDER
     Route: 048
  12. VITAMIN D [Concomitant]
     Route: 048
  13. VITAMIN E [Concomitant]
     Route: 048
  14. FENTANYL [Concomitant]
     Dosage: ONE PATCH EVERY DAY
     Route: 048
  15. LOVASTATIN [Concomitant]
     Route: 048
  16. SEROQUEL [Suspect]
     Indication: POST-TRAUMATIC STRESS DISORDER
     Route: 048
  17. NARCOTICS [Suspect]
     Indication: PAIN
     Route: 065
  18. PROZAC [Concomitant]
  19. POTASSIUM CHLORIDE [Concomitant]
     Route: 048
  20. FLUOXETINE HYDROCHLORIDE [Concomitant]
     Route: 048
  21. CARISOPRODOL [Concomitant]
     Route: 048
  22. FEMARA [Concomitant]
     Route: 048
  23. SSRI [Suspect]
     Route: 065
  24. PRILOSEC [Concomitant]
     Route: 048
  25. LONITEN [Concomitant]
     Route: 048
  26. NITROSTAT [Concomitant]
     Indication: CHEST PAIN
     Dosage: AS REQUIRED
     Route: 060
  27. NORVASC [Concomitant]
     Route: 048
  28. LOPRESSOR [Concomitant]
     Route: 048
  29. ALDACTONE [Concomitant]
     Route: 048
  30. REQUIP [Suspect]
     Route: 065
  31. CLONIDINE [Concomitant]
     Route: 048
  32. AMOXICILLIN [Concomitant]

REACTIONS (12)
  - SEDATION [None]
  - NOCTURIA [None]
  - NAUSEA [None]
  - ELECTROLYTE DEPLETION [None]
  - CONVULSION [None]
  - AMNESIA [None]
  - WEIGHT DECREASED [None]
  - BREAST CANCER [None]
  - HYPOVOLAEMIA [None]
  - VERTIGO [None]
  - INAPPROPRIATE ANTIDIURETIC HORMONE SECRETION [None]
  - HYPONATRAEMIA [None]
